APPROVED DRUG PRODUCT: DICLOFENAC SODIUM
Active Ingredient: DICLOFENAC SODIUM
Strength: 100MG
Dosage Form/Route: TABLET, EXTENDED RELEASE;ORAL
Application: A075492 | Product #001 | TE Code: AB
Applicant: VALEANT PHARMACEUTICALS NORTH AMERICA
Approved: Feb 11, 2000 | RLD: No | RS: No | Type: RX